FAERS Safety Report 7109939-X (Version None)
Quarter: 2010Q4

REPORT INFORMATION
  Report Type: 
  Country: None (occurrence: None)
  Receive Date: 20101116
  Receipt Date: 20101116
  Transmission Date: 20110411
  Serious: Yes (Life-Threatening, Hospitalization)
  Sender: FDA-Public Use
  Company Number: None

PATIENT
  Age: 71 Year
  Sex: Male
  Weight: 86 kg

DRUGS (12)
  1. ERBITUX 200MG/100ML BRISTON-MYERS SQUIBB [Suspect]
     Indication: HEAD AND NECK CANCER
     Dosage: 800MG -400MG/M2 ONCE IV DRIP
     Route: 041
     Dates: start: 20101111, end: 20101111
  2. ACETAMINOPHEN [Concomitant]
  3. DIPHENHYDRAMINE [Concomitant]
  4. COUMADIN [Concomitant]
  5. GABAPENTIN [Concomitant]
  6. METHOCARBAMOL [Concomitant]
  7. METOPROLOL [Concomitant]
  8. PLAVIX [Concomitant]
  9. SIMVASTATIN [Concomitant]
  10. TRAMADOL [Concomitant]
  11. VALACYCLOVIR [Concomitant]
  12. ZANTAC [Concomitant]

REACTIONS (6)
  - DYSARTHRIA [None]
  - DYSPNOEA [None]
  - HYPERHIDROSIS [None]
  - PRURITUS [None]
  - RESTLESSNESS [None]
  - SCRATCH [None]
